FAERS Safety Report 4489469-4 (Version None)
Quarter: 2004Q4

REPORT INFORMATION
  Report Type: 
  Country: None (occurrence: None)
  Receive Date: 20041026
  Receipt Date: 20041013
  Transmission Date: 20050328
  Serious: Yes (Hospitalization)
  Sender: FDA-Public Use
  Company Number: 2004240085BE

PATIENT
  Age: 80 Year
  Sex: Female

DRUGS (2)
  1. AROMASIN [Suspect]
     Indication: BREAST CANCER
     Dosage: ORAL
     Route: 048
     Dates: start: 20040715, end: 20040701
  2. COVERSYL   (PERIDOPRIL) [Concomitant]

REACTIONS (5)
  - COLITIS [None]
  - DIARRHOEA [None]
  - METASTASES TO BONE [None]
  - NODULE [None]
  - PNEUMOCOCCAL INFECTION [None]
